FAERS Safety Report 20901881 (Version 1)
Quarter: 2022Q2

REPORT INFORMATION
  Report Type: Report from Study
  Country: IT (occurrence: IT)
  Receive Date: 20220601
  Receipt Date: 20220601
  Transmission Date: 20220721
  Serious: Yes (Other)
  Sender: FDA-Public Use
  Company Number: IT-GLAXOSMITHKLINE-IT2022GSK085302

PATIENT

DRUGS (1)
  1. BELANTAMAB MAFODOTIN [Suspect]
     Active Substance: BELANTAMAB MAFODOTIN
     Indication: Plasma cell myeloma refractory
     Dosage: 2.5 MG/KG, EVERY 3 WEEKS (MEAN TIME OF 28 DAYS)
     Dates: start: 2021

REACTIONS (4)
  - Corneal deposits [Unknown]
  - Corneal disorder [Unknown]
  - Corneal thickening [Unknown]
  - Keratopathy [Unknown]
